FAERS Safety Report 5333198-1 (Version None)
Quarter: 2007Q2

REPORT INFORMATION
  Report Type: 
  Country: None (occurrence: None)
  Receive Date: 20070521
  Receipt Date: 20070521
  Transmission Date: 20071010
  Serious: No
  Sender: FDA-Public Use
  Company Number: None

PATIENT
  Age: 83 Year
  Sex: Male

DRUGS (1)
  1. PHENYLEPHRINE [Suspect]
     Dosage: 2DROPS ONCE EYE
     Route: 047
     Dates: start: 20070501, end: 20070501

REACTIONS (1)
  - BRADYCARDIA [None]
